FAERS Safety Report 7787169-6 (Version None)
Quarter: 2011Q3

REPORT INFORMATION
  Report Type: 
  Country: None (occurrence: None)
  Receive Date: 20110927
  Receipt Date: 20110913
  Transmission Date: 20111222
  Serious: Yes (Life-Threatening, Hospitalization)
  Sender: FDA-Public Use
  Company Number: TIF2011A00106

PATIENT
  Age: 74 Year
  Sex: Male

DRUGS (4)
  1. AVANDAMET (METFORMIN HYDROCHLORIDE, ROSIGLITAZONE MALEATE) [Suspect]
     Indication: DIABETES MELLITUS INADEQUATE CONTROL
     Dosage: 4/2000 MG (2 IN 1 D)
     Route: 048
     Dates: start: 20070626, end: 20100922
  2. PIOGLITAZONE HYDROCHLORIDE AND METFORMIN HYDROCHLORIDE [Suspect]
     Indication: DIABETES MELLITUS INADEQUATE CONTROL
     Dosage: 30/1700 MG (2 IN 1 D)
     Route: 048
     Dates: start: 20100927, end: 20110607
  3. GLICONORM (METFORMIN, GLIBENCLAMIDE) [Suspect]
     Indication: DIABETES MELLITUS
     Dosage: 10/1000 MG (2 IN 1 D)
     Route: 048
     Dates: start: 19971014
  4. SIMVASTATIN [Concomitant]

REACTIONS (4)
  - CARDIAC FAILURE [None]
  - MYOCARDIAL ISCHAEMIA [None]
  - CORONARY ARTERY STENOSIS [None]
  - MITRAL VALVE INCOMPETENCE [None]
